FAERS Safety Report 7595032-9 (Version None)
Quarter: 2011Q2

REPORT INFORMATION
  Report Type: 
  Country: None (occurrence: None)
  Receive Date: 20110620
  Receipt Date: 20110330
  Transmission Date: 20111010
  Serious: Yes (Hospitalization)
  Sender: FDA-Public Use
  Company Number: UTC-006021

PATIENT
  Age: 64 Year
  Sex: Male

DRUGS (2)
  1. ADCIRCA [Concomitant]
  2. TYVASO [Suspect]
     Dosage: INHALATION
     Route: 055
     Dates: start: 20100810

REACTIONS (4)
  - DYSPHAGIA [None]
  - SHOULDER OPERATION [None]
  - NAUSEA [None]
  - ORAL CANDIDIASIS [None]
